FAERS Safety Report 13805443 (Version 1)
Quarter: 2017Q3

REPORT INFORMATION
  Report Type: Report from Study
  Country: JP (occurrence: JP)
  Receive Date: 20170728
  Receipt Date: 20170728
  Transmission Date: 20171127
  Serious: Yes (Other)
  Sender: FDA-Public Use
  Company Number: JP-BRISTOL-MYERS SQUIBB COMPANY-BMS-1999-000002

PATIENT
  Age: 48 Year
  Sex: Male

DRUGS (17)
  1. BLINDED ARIPIPRAZOLE [Suspect]
     Active Substance: ARIPIPRAZOLE
     Indication: PRODUCT USED FOR UNKNOWN INDICATION
     Dosage: 2 DF, QD
     Route: 048
     Dates: start: 19990119, end: 19990301
  2. BLINDED HALOPERIDOL [Suspect]
     Active Substance: HALOPERIDOL
     Indication: PRODUCT USED FOR UNKNOWN INDICATION
     Dosage: 4 DF, UNK
     Route: 048
     Dates: start: 19990302, end: 19990305
  3. BROTIZOLAM [Concomitant]
     Active Substance: BROTIZOLAM
     Indication: INSOMNIA
     Dosage: 0.5 MG, QD
     Route: 048
     Dates: start: 19980427
  4. SOMELIN [Concomitant]
     Active Substance: HALOXAZOLAM
     Indication: INSOMNIA
     Dosage: 15 MG, QD
     Route: 048
     Dates: start: 19980427
  5. IMPROMEN [Concomitant]
     Active Substance: BROMPERIDOL
     Indication: SCHIZOPHRENIA
     Dosage: 2 MG, QD
     Route: 048
     Dates: start: 19980616
  6. BLINDED HALOPERIDOL [Suspect]
     Active Substance: HALOPERIDOL
     Indication: PRODUCT USED FOR UNKNOWN INDICATION
     Dosage: 2 DF, QD
     Route: 048
     Dates: start: 19990119, end: 19990301
  7. BESACOLIN [Concomitant]
     Active Substance: BETHANECHOL CHLORIDE
     Indication: URINARY RETENTION
     Dosage: 45 MG, QD
     Route: 048
     Dates: start: 19980427
  8. RISPERDAL [Concomitant]
     Active Substance: RISPERIDONE
     Indication: SCHIZOPHRENIA
     Dosage: 2 MG, QD
     Route: 048
     Dates: start: 19980616, end: 19990118
  9. ROHIPNOL [Concomitant]
     Active Substance: FLUNITRAZEPAM
     Indication: INSOMNIA
     Dosage: 4 MG, QD
     Route: 048
     Dates: start: 19980427
  10. MARZULENE S [Concomitant]
     Active Substance: GLUTAMINE\SODIUM GUALENATE
     Indication: GASTRITIS
     Dosage: 2 G, QD
     Route: 065
     Dates: start: 19980427
  11. CYSTANIN [Concomitant]
     Active Substance: ETHYL CYSTEINATE HYDROCHLORIDE
     Indication: THIRST
     Dosage: 300 MG, QD
     Route: 048
     Dates: start: 19980427
  12. HALCION [Concomitant]
     Active Substance: TRIAZOLAM
     Indication: INSOMNIA
     Dosage: 0.25 MG, QD
     Route: 048
     Dates: start: 19981229
  13. SENNOSIDE [Concomitant]
     Active Substance: SENNOSIDES
     Indication: CONSTIPATION
     Dosage: 12 MG, QD
     Route: 048
     Dates: start: 19980427
  14. IMPROMEN [Concomitant]
     Active Substance: BROMPERIDOL
     Indication: PRODUCT USED FOR UNKNOWN INDICATION
     Dosage: UNK
     Route: 048
     Dates: start: 19990309
  15. CEREKINON [Concomitant]
     Active Substance: TRIMEBUTINE
     Indication: GASTRITIS
     Dosage: 300 MG, QD
     Route: 048
     Dates: start: 19990209
  16. BLINDED ARIPIPRAZOLE [Suspect]
     Active Substance: ARIPIPRAZOLE
     Indication: PRODUCT USED FOR UNKNOWN INDICATION
     Dosage: 4 DF, UNK
     Route: 048
     Dates: start: 19990302, end: 19990305
  17. PARKINES [Concomitant]
     Indication: PRODUCT USED FOR UNKNOWN INDICATION
     Dosage: 4 MG, QD
     Route: 048
     Dates: start: 19980616, end: 19990118

REACTIONS (3)
  - Delusion [Recovering/Resolving]
  - Hallucination [Recovering/Resolving]
  - Stereotypy [Recovered/Resolved]

NARRATIVE: CASE EVENT DATE: 19990305
